FAERS Safety Report 13282288 (Version 1)
Quarter: 2017Q1

REPORT INFORMATION
  Report Type: Report from Study
  Country: BR (occurrence: BR)
  Receive Date: 20170301
  Receipt Date: 20170301
  Transmission Date: 20170428
  Serious: Yes (Other)
  Sender: FDA-Public Use
  Company Number: PHHY2017BR031673

PATIENT
  Sex: Female
  Weight: 67 kg

DRUGS (2)
  1. EXELON PATCH [Suspect]
     Active Substance: RIVASTIGMINE
     Dosage: 9.6 MG, QD (PATCH 10 CM2)
     Route: 062
  2. EXELON PATCH [Suspect]
     Active Substance: RIVASTIGMINE
     Indication: DEMENTIA ALZHEIMER^S TYPE
     Dosage: 4.8 MG, QD (PATCH 5 CM2)
     Route: 062

REACTIONS (2)
  - Dementia with Lewy bodies [Unknown]
  - Hypokinesia [Unknown]
